FAERS Safety Report 14995288 (Version 1)
Quarter: 2018Q2

REPORT INFORMATION
  Report Type: Spontaneous
  Country: US (occurrence: US)
  Receive Date: 20180611
  Receipt Date: 20180611
  Transmission Date: 20180711
  Serious: Yes (Other)
  Sender: FDA-Public Use
  Company Number: US-TEVA-2018-US-902077

PATIENT
  Age: 84 Year
  Sex: Female

DRUGS (1)
  1. AMIODARONE [Suspect]
     Active Substance: AMIODARONE
     Indication: HEART RATE IRREGULAR
     Route: 065
     Dates: start: 20180525, end: 20180526

REACTIONS (13)
  - Heart rate increased [Recovering/Resolving]
  - Cough [Recovering/Resolving]
  - Extrasystoles [Recovering/Resolving]
  - Blood pressure fluctuation [Recovering/Resolving]
  - Blister [Recovering/Resolving]
  - Dizziness [Recovering/Resolving]
  - Chest pain [Recovering/Resolving]
  - Heart rate decreased [Recovering/Resolving]
  - Weight increased [Recovering/Resolving]
  - Yellow skin [Recovering/Resolving]
  - Dyspnoea [Recovering/Resolving]
  - Palpitations [Recovering/Resolving]
  - Nausea [Recovering/Resolving]

NARRATIVE: CASE EVENT DATE: 20180526
